FAERS Safety Report 6668710-3 (Version None)
Quarter: 2010Q2

REPORT INFORMATION
  Report Type: 
  Country: None (occurrence: None)
  Receive Date: 20100401
  Receipt Date: 20100317
  Transmission Date: 20101027
  Serious: Yes (Disabling)
  Sender: FDA-Public Use
  Company Number: 2010-0727

PATIENT
  Age: 76 Year
  Sex: Female

DRUGS (2)
  1. DYSPORT [Suspect]
     Indication: BLEPHAROSPASM
     Dosage: 160 UNITS (160 UNITS,SINGLE CYCLE EVERY 3 MONTHS), INTRAMUSCULAR
     Route: 030
     Dates: start: 20100119, end: 20100119
  2. ABOBOTULINIMTOXINA [Suspect]

REACTIONS (1)
  - EYELID PTOSIS [None]
